FAERS Safety Report 8990036 (Version 1)
Quarter: 2012Q4

REPORT INFORMATION
  Report Type: 
  Country: DE (occurrence: DE)
  Receive Date: 20121228
  Receipt Date: 20121228
  Transmission Date: 20130627
  Serious: Yes (Hospitalization, Other)
  Sender: FDA-Public Use
  Company Number: DE-B.I. PHARMACEUTICALS,INC./RIDGEFIELD-2012-DE-03060DE

PATIENT
  Age: 77 Year
  Sex: Male

DRUGS (7)
  1. PRADAXA [Suspect]
     Indication: ATRIAL FIBRILLATION
     Dosage: 150 mg
     Route: 048
     Dates: start: 20120705
  2. HCT [Concomitant]
     Dosage: 12.5 mg
     Route: 048
  3. MOVICOL [Concomitant]
     Dosage: 1x1 BTL.
     Route: 048
  4. BISOPROLOL [Concomitant]
     Dosage: 1-0-0.5
     Route: 048
  5. RAMIPRIL [Concomitant]
     Dosage: 10 mg
     Route: 048
  6. SEROQUEL [Concomitant]
     Dosage: 2-0-1
     Route: 048
  7. VALDOXAN [Concomitant]
     Dosage: 0-0-2
     Route: 048

REACTIONS (2)
  - Haematuria [Unknown]
  - Renal failure [Not Recovered/Not Resolved]
